FAERS Safety Report 5210084-9 (Version None)
Quarter: 2006Q4

REPORT INFORMATION
  Report Type: 
  Country: None (occurrence: None)
  Receive Date: 20061103
  Receipt Date: 20060724
  Transmission Date: 20070319
  Serious: Yes (Other)
  Sender: FDA-Public Use
  Company Number: 456941

PATIENT
  Sex: Male

DRUGS (1)
  1. BONIVA [Suspect]
     Indication: DRUG USE FOR UNKNOWN INDICATION
     Dosage: 3 MG INTRAVENOUS
     Route: 042
     Dates: start: 20060515

REACTIONS (7)
  - ANOREXIA [None]
  - BACK PAIN [None]
  - BONE PAIN [None]
  - BONE SWELLING [None]
  - BREAST PAIN [None]
  - DYSPHAGIA [None]
  - PAIN [None]
